FAERS Safety Report 9432230 (Version 1)
Quarter: 2013Q3

REPORT INFORMATION
  Report Type: Report from Study
  Country: US (occurrence: US)
  Receive Date: 20130731
  Receipt Date: 20130731
  Transmission Date: 20140515
  Serious: Yes (Other)
  Sender: FDA-Public Use
  Company Number: PHEH2013US015802

PATIENT
  Age: 32 Year
  Sex: Female

DRUGS (11)
  1. AFINITOR [Suspect]
     Indication: ASTROCYTOMA, LOW GRADE
     Dosage: 5 MG, DAILY
     Route: 048
     Dates: start: 20130706
  2. DEPAKOTE [Concomitant]
  3. CALCIUM [Concomitant]
  4. BENZODIAZEPINES [Concomitant]
  5. KEPPRA [Concomitant]
  6. ADVAIR [Concomitant]
  7. XANAX [Concomitant]
  8. ATENOLOL [Concomitant]
  9. VICODIN [Concomitant]
  10. NEXIUM [Concomitant]
  11. PROVENTIL [Concomitant]

REACTIONS (3)
  - Chest discomfort [Unknown]
  - Oropharyngeal pain [Unknown]
  - Heart rate increased [Unknown]
